FAERS Safety Report 7444423-5 (Version None)
Quarter: 2011Q2

REPORT INFORMATION
  Report Type: 
  Country: None (occurrence: None)
  Receive Date: 20110419
  Receipt Date: 20110405
  Transmission Date: 20111010
  Serious: Yes (Other)
  Sender: FDA-Public Use
  Company Number: JP-2011-10478

PATIENT
  Age: 52 Year
  Sex: Female
  Weight: 70.2 kg

DRUGS (14)
  1. SAMSCA [Suspect]
     Indication: WEIGHT INCREASED
     Dosage: 7.5 MG MILLIGRAM(S), QD, ORAL
     Route: 048
     Dates: start: 20110214, end: 20110215
  2. SAMSCA [Suspect]
     Indication: FLUID RETENTION
     Dosage: 7.5 MG MILLIGRAM(S), QD, ORAL
     Route: 048
     Dates: start: 20110214, end: 20110215
  3. ELNEOPA NO. 2 (MIXED AMINO ACID_CARBOHYDRATE_ELECTROLYTE_VITAMIN COMBI [Concomitant]
  4. FINIBAC (DORIPENEM) [Concomitant]
  5. PROGRAF [Concomitant]
  6. SODIUM CHLORIDE [Concomitant]
  7. ATARAX [Concomitant]
  8. HICALIQ RF (INTRAVENOUS HYPERALIMENTATIVE  BASIC SOLUTION) INJECTION [Suspect]
     Dosage: 500 ML MILILITRE(S), DAILY DOSE, IV DRIP
     Route: 041
     Dates: start: 20110218, end: 20110221
  9. NEUPOGEN [Concomitant]
  10. METHOTREXATE [Concomitant]
  11. TARGOCID [Concomitant]
  12. HANP (CARPERITIDE) [Concomitant]
  13. LASIX [Concomitant]
  14. FUNGUARD (MICAFUNGIN SODIUM) [Concomitant]

REACTIONS (8)
  - HYPOVOLAEMIA [None]
  - HYPERNATRAEMIA [None]
  - BLOOD CHLORIDE INCREASED [None]
  - DIABETIC HYPEROSMOLAR COMA [None]
  - CONVULSION [None]
  - POLYURIA [None]
  - ALTERED STATE OF CONSCIOUSNESS [None]
  - BLOOD UREA INCREASED [None]
